FAERS Safety Report 4622670-5 (Version None)
Quarter: 2005Q1

REPORT INFORMATION
  Report Type: 
  Country: None (occurrence: None)
  Receive Date: 20050330
  Receipt Date: 20050103
  Transmission Date: 20050727
  Serious: No
  Sender: FDA-Public Use
  Company Number: US-BRISTOL-MYERS SQUIBB COMPANY-12811162

PATIENT
  Age: 47 Year
  Sex: Female
  Weight: 57 kg

DRUGS (3)
  1. REYATAZ [Suspect]
     Indication: HIV INFECTION
     Route: 048
     Dates: start: 20040101
  2. ZERIT [Concomitant]
  3. ALLEGRA-D [Concomitant]

REACTIONS (4)
  - BURNING SENSATION [None]
  - ERUCTATION [None]
  - FLATULENCE [None]
  - NAUSEA [None]
